FAERS Safety Report 8587055-8 (Version None)
Quarter: 2012Q3

REPORT INFORMATION
  Report Type: 
  Country: None (occurrence: None)
  Receive Date: 20120810
  Receipt Date: 20120807
  Transmission Date: 20120928
  Serious: Yes (Hospitalization)
  Sender: FDA-Public Use
  Company Number: GB-ROCHE-1095041

PATIENT
  Sex: Female
  Weight: 79.1 kg

DRUGS (2)
  1. AVASTIN [Suspect]
     Indication: BREAST CANCER
     Dosage: LAST DOSE PRIOR TO SAE WAS CYCLE 2 ON 22/JUN/2012
     Route: 042
     Dates: start: 20120622
  2. DOCETAXEL [Suspect]
     Indication: BREAST CANCER
     Dosage: LAST DOSE PRIOR TO SAE WAS CYCLE 2 ON 22/JUN/2012.
     Route: 042
     Dates: start: 20120622

REACTIONS (2)
  - HYPERTENSION [None]
  - SEPSIS [None]
